FAERS Safety Report 12485025 (Version 1)
Quarter: 2016Q2

REPORT INFORMATION
  Report Type: Spontaneous
  Country: GB (occurrence: GB)
  Receive Date: 20160621
  Receipt Date: 20160621
  Transmission Date: 20160815
  Serious: Yes (Other)
  Sender: FDA-Public Use
  Company Number: GB-GLAXOSMITHKLINE-B0533161A

PATIENT
  Age: 27 Year
  Sex: Male

DRUGS (13)
  1. PAROXETINE HYDROCHLORIDE. [Suspect]
     Active Substance: PAROXETINE HYDROCHLORIDE
     Indication: DEPRESSION
     Dosage: 20 MG, BID
     Route: 048
     Dates: start: 20030528, end: 20061201
  2. DIAZEPAM. [Concomitant]
     Active Substance: DIAZEPAM
     Route: 065
     Dates: start: 20051007
  3. HERBAL REMEDY [Concomitant]
     Dates: start: 200509
  4. ANTIHISTAMINE [Concomitant]
     Active Substance: UNSPECIFIED INGREDIENT
     Indication: RASH
     Dates: start: 200402
  5. SEROXAT [Suspect]
     Active Substance: PAROXETINE HYDROCHLORIDE
     Dosage: 20 MG, BID
     Route: 048
     Dates: start: 20030521, end: 20121231
  6. PAROXETINE. [Suspect]
     Active Substance: PAROXETINE
     Indication: DEPRESSION
     Dosage: UNK
     Route: 065
     Dates: start: 20050831, end: 20081118
  7. PAROXETINE HYDROCHLORIDE. [Suspect]
     Active Substance: PAROXETINE HYDROCHLORIDE
     Dosage: 30 MG, QD
     Route: 048
     Dates: start: 20051007, end: 20060908
  8. FINASTERIDE. [Concomitant]
     Active Substance: FINASTERIDE
     Indication: ALOPECIA
     Dates: start: 20070605
  9. CIPRALEX [Concomitant]
     Active Substance: ESCITALOPRAM OXALATE
     Route: 065
     Dates: start: 20060223, end: 200607
  10. SEROXAT [Suspect]
     Active Substance: PAROXETINE HYDROCHLORIDE
     Indication: DEPRESSION
     Dosage: UNK
     Route: 065
     Dates: start: 20030521
  11. PAROXETINE. [Suspect]
     Active Substance: PAROXETINE
     Dosage: 15 MG, QD
     Route: 065
     Dates: start: 20060223
  12. PAROXETINE. [Suspect]
     Active Substance: PAROXETINE
     Indication: DEPRESSION
     Dosage: UNK
     Route: 048
     Dates: start: 20070105, end: 20070605
  13. FLUOXETINE [Concomitant]
     Active Substance: FLUOXETINE HYDROCHLORIDE
     Dates: start: 200806

REACTIONS (33)
  - Aggression [Unknown]
  - Thought insertion [Recovered/Resolved]
  - Tearfulness [Unknown]
  - Decreased appetite [Unknown]
  - Hyperhidrosis [Unknown]
  - Memory impairment [Unknown]
  - Drug withdrawal syndrome [Unknown]
  - Photosensitivity reaction [Unknown]
  - Vision blurred [Unknown]
  - Hypoacusis [Unknown]
  - Rash pruritic [Unknown]
  - Suicidal ideation [Unknown]
  - Anhedonia [Unknown]
  - Frustration tolerance decreased [Unknown]
  - Dizziness [Unknown]
  - Memory impairment [Unknown]
  - Vertigo [Unknown]
  - Palpitations [Unknown]
  - Depressed mood [Unknown]
  - Vitreous floaters [Unknown]
  - Poor quality sleep [Unknown]
  - Nightmare [Recovered/Resolved]
  - Condition aggravated [Unknown]
  - Visual impairment [Not Recovered/Not Resolved]
  - Myalgia [Unknown]
  - Loss of libido [Unknown]
  - Derealisation [Unknown]
  - Fatigue [Recovered/Resolved]
  - Disturbance in attention [Not Recovered/Not Resolved]
  - Balance disorder [Not Recovered/Not Resolved]
  - Confusional state [Unknown]
  - Anxiety [Unknown]
  - Apathy [Unknown]

NARRATIVE: CASE EVENT DATE: 20040212
